FAERS Safety Report 7217588-8 (Version None)
Quarter: 2011Q1

REPORT INFORMATION
  Report Type: 
  Country: None (occurrence: None)
  Receive Date: 20110110
  Receipt Date: 20101231
  Transmission Date: 20110831
  Serious: Yes (Death)
  Sender: FDA-Public Use
  Company Number: US-PFIZER INC-2011002934

PATIENT
  Age: 36 Year
  Sex: Male

DRUGS (9)
  1. FUROSEMIDE [Suspect]
  2. DIGOXIN [Suspect]
  3. TRAZODONE [Suspect]
  4. SALICYLATE SODIUM [Suspect]
  5. AMIODARONE [Suspect]
  6. WARFARIN [Suspect]
  7. PREDNISONE [Suspect]
  8. CARVEDILOL [Suspect]
  9. SPIRONOLACTONE [Suspect]

REACTIONS (3)
  - RESPIRATORY ARREST [None]
  - CARDIAC ARREST [None]
  - COMPLETED SUICIDE [None]
